FAERS Safety Report 25229801 (Version 1)
Quarter: 2025Q2

REPORT INFORMATION
  Report Type: Spontaneous
  Country: US (occurrence: None)
  Receive Date: 20250423
  Receipt Date: 20250423
  Transmission Date: 20250716
  Serious: Yes (Other)
  Sender: FDA-CTU
  Company Number: None

PATIENT
  Age: 29 Month
  Sex: Female

DRUGS (4)
  1. VIJOICE [Suspect]
     Active Substance: ALPELISIB
     Indication: Congenital anomaly
     Dosage: FREQUENCY : DAILY;?
     Route: 048
     Dates: start: 20231216
  2. BACTRIM DS [Concomitant]
     Active Substance: SULFAMETHOXAZOLE\TRIMETHOPRIM
  3. PEPCID TAB 20MG [Concomitant]
  4. POLY-VI-SOL SOL IRON [Concomitant]

REACTIONS (2)
  - Intentional dose omission [None]
  - Surgery [None]

NARRATIVE: CASE EVENT DATE: 20250417
